FAERS Safety Report 22646704 (Version 1)
Quarter: 2023Q2

REPORT INFORMATION
  Report Type: Spontaneous
  Country: US (occurrence: None)
  Receive Date: 20230626
  Receipt Date: 20230626
  Transmission Date: 20230722
  Serious: Yes (Other)
  Sender: FDA-Public Use
  Company Number: None

PATIENT
  Age: 33 Year
  Sex: Male
  Weight: 104.33 kg

DRUGS (3)
  1. FLUOXETINE [Suspect]
     Active Substance: FLUOXETINE HYDROCHLORIDE
  2. OLMESTARTAN [Concomitant]
  3. AMLODIPINE [Concomitant]
     Active Substance: AMLODIPINE BESYLATE

REACTIONS (12)
  - Product storage error [None]
  - Dyspepsia [None]
  - Abdominal discomfort [None]
  - Drug ineffective [None]
  - Withdrawal syndrome [None]
  - Panic attack [None]
  - Dissociation [None]
  - Insomnia [None]
  - Vomiting [None]
  - Toxicity to various agents [None]
  - Drug interaction [None]
  - Product formulation issue [None]

NARRATIVE: CASE EVENT DATE: 20230619
